FAERS Safety Report 23993761 (Version 1)
Quarter: 2024Q2

REPORT INFORMATION
  Report Type: Spontaneous
  Country: US (occurrence: US)
  Receive Date: 20240620
  Receipt Date: 20240620
  Transmission Date: 20240716
  Serious: Yes (Other)
  Sender: FDA-Public Use
  Company Number: US-SUN PHARMACEUTICAL INDUSTRIES LTD-2024R1-451527

PATIENT
  Age: 65 Year
  Sex: Female

DRUGS (5)
  1. PAZOPANIB [Interacting]
     Active Substance: PAZOPANIB
     Indication: Soft tissue sarcoma
     Dosage: 400 MILLIGRAM, DAILY
     Route: 048
  2. PAZOPANIB [Interacting]
     Active Substance: PAZOPANIB
     Dosage: 800 MILLIGRAM, DAILY
     Route: 048
  3. HERBALS [Interacting]
     Active Substance: HERBALS
     Indication: Supplementation therapy
     Dosage: UNK
     Route: 065
  4. CALCIUM [Concomitant]
     Active Substance: CALCIUM
     Indication: Supplementation therapy
     Dosage: UNK
     Route: 065
  5. VITAMINS [Concomitant]
     Active Substance: VITAMINS
     Indication: Supplementation therapy
     Dosage: UNK
     Route: 065

REACTIONS (3)
  - Drug interaction [Unknown]
  - Hypertransaminasaemia [Recovered/Resolved]
  - Gastrointestinal toxicity [Recovered/Resolved]
